FAERS Safety Report 26110037 (Version 1)
Quarter: 2025Q4

REPORT INFORMATION
  Report Type: Report from Study
  Country: EU (occurrence: EU)
  Receive Date: 20251201
  Receipt Date: 20251201
  Transmission Date: 20260117
  Serious: Yes (Hospitalization)
  Sender: ABBVIE
  Company Number: EU-ABBVIE-6570328

PATIENT
  Age: 69 Year
  Sex: Female

DRUGS (10)
  1. FOSCARBIDOPA\FOSLEVODOPA [Suspect]
     Active Substance: FOSCARBIDOPA\FOSLEVODOPA
     Indication: Parkinson^s disease
     Dosage: 1 VIAL?PRODUODOPA BASE RATE
     Route: 058
     Dates: start: 20250224
  2. STALEVO [Concomitant]
     Active Substance: CARBIDOPA\ENTACAPONE\LEVODOPA
     Indication: Product used for unknown indication
     Dosage: 7AM,10AM,1PM, 4PM,7PM?ROA: OTHER
  3. AMANTADINE [Concomitant]
     Active Substance: AMANTADINE
     Indication: Product used for unknown indication
     Dosage: ROA: OTHER
  4. ASPIRIN [Concomitant]
     Active Substance: ASPIRIN
     Indication: Product used for unknown indication
     Dosage: ROA: OTHER
  5. PANTOPRAZOLE [Concomitant]
     Active Substance: PANTOPRAZOLE
     Indication: Product used for unknown indication
     Dosage: ROA: OTHER
  6. FUROSEMIDE [Concomitant]
     Active Substance: FUROSEMIDE
     Indication: Product used for unknown indication
     Dosage: ROA: OTHER
  7. Bisop [Concomitant]
     Indication: Product used for unknown indication
     Dosage: ROA: OTHER
  8. LEXAPRO [Concomitant]
     Active Substance: ESCITALOPRAM OXALATE
     Indication: Product used for unknown indication
     Dosage: ROA: OTHER
  9. COZAAR [Concomitant]
     Active Substance: LOSARTAN POTASSIUM
     Indication: Product used for unknown indication
     Dosage: ROA: OTHER
  10. BEMPEDOIC ACID [Concomitant]
     Active Substance: BEMPEDOIC ACID
     Indication: Product used for unknown indication
     Dosage: ROA: OTHER

REACTIONS (1)
  - Paranoia [Unknown]

NARRATIVE: CASE EVENT DATE: 20250101
